FAERS Safety Report 6882324-1 (Version None)
Quarter: 2010Q3

REPORT INFORMATION
  Report Type: 
  Country: None (occurrence: None)
  Receive Date: 20100729
  Receipt Date: 20091022
  Transmission Date: 20110219
  Serious: No
  Sender: FDA-Public Use
  Company Number: US-MYLANLABS-2009S1018563

PATIENT
  Sex: Female

DRUGS (1)
  1. LEVOTHYROXINE SODIUM [Suspect]
     Route: 048
     Dates: start: 20091008

REACTIONS (2)
  - CONSTIPATION [None]
  - THERAPEUTIC RESPONSE UNEXPECTED [None]
